FAERS Safety Report 6108399-5 (Version None)
Quarter: 2009Q1

REPORT INFORMATION
  Report Type: 
  Country: None (occurrence: None)
  Receive Date: 20090309
  Receipt Date: 20090225
  Transmission Date: 20090719
  Serious: Yes (Other)
  Sender: FDA-Public Use
  Company Number: PHHY2009MX06445

PATIENT
  Sex: Female

DRUGS (6)
  1. DIOVAN [Suspect]
     Indication: HYPERTENSION
     Dosage: 1 TABLET DAILY
     Route: 048
     Dates: start: 20061107
  2. AMLODIPINE [Concomitant]
     Dosage: 1 TABLET (5 MG) DAILY
     Route: 048
     Dates: start: 20090201
  3. TENORMIN [Concomitant]
     Dosage: 1 TABLET DAILY
     Route: 048
     Dates: start: 20090201
  4. OMEPRAZOLE [Concomitant]
     Dosage: 1 TABLET DAILY
     Route: 048
     Dates: start: 20090201
  5. ATENOLOL [Concomitant]
     Dosage: 50 MG/DAY
  6. LISINOPRIL [Concomitant]
     Dosage: 10 MG/DAY

REACTIONS (4)
  - FALL [None]
  - HAEMATOMA [None]
  - JOINT CONTRACTURE [None]
  - OEDEMA [None]
